FAERS Safety Report 6890921-2 (Version None)
Quarter: 2010Q3

REPORT INFORMATION
  Report Type: 
  Country: None (occurrence: None)
  Receive Date: 20100731
  Receipt Date: 20090413
  Transmission Date: 20110219
  Serious: No
  Sender: FDA-Public Use
  Company Number: US-PFIZER INC-2009168976

PATIENT
  Sex: Female
  Weight: 61 kg

DRUGS (2)
  1. LIPITOR [Suspect]
     Indication: LIPIDS INCREASED
     Dosage: UNK
     Dates: end: 20090201
  2. VITAMINS [Concomitant]

REACTIONS (1)
  - TINNITUS [None]
